FAERS Safety Report 14759341 (Version 2)
Quarter: 2018Q2

REPORT INFORMATION
  Report Type: Spontaneous
  Country: ES (occurrence: ES)
  Receive Date: 20180413
  Receipt Date: 20180601
  Transmission Date: 20180711
  Serious: Yes (Other)
  Sender: FDA-Public Use
  Company Number: ES-TEVA-2018-ES-879162

PATIENT
  Age: 35 Year
  Sex: Male

DRUGS (3)
  1. DOLOCATIL 1 G COMPRIMIDOS EFG, 40 COMPRIMIDOS [Suspect]
     Active Substance: ACETAMINOPHEN
     Indication: PHARYNGITIS
     Route: 048
     Dates: start: 20171107, end: 20171112
  2. AMOXICILINA NORMON 1000 MG POLVO PARA SUSPENSI?N ORAL EN SOBRES EFG , [Suspect]
     Active Substance: AMOXICILLIN
     Indication: PHARYNGITIS
     Route: 048
     Dates: start: 20171108, end: 20171110
  3. IBUPROFEN (1769A) [Suspect]
     Active Substance: IBUPROFEN
     Indication: PHARYNGITIS
     Route: 048
     Dates: start: 20171107, end: 20171110

REACTIONS (2)
  - Rash macular [Recovered/Resolved]
  - Drug-induced liver injury [Recovered/Resolved]

NARRATIVE: CASE EVENT DATE: 20171108
